FAERS Safety Report 9721619 (Version 2)
Quarter: 2015Q2

REPORT INFORMATION
  Report Type: Spontaneous
  Country: US (occurrence: US)
  Receive Date: 20131201
  Receipt Date: 20150501
  Transmission Date: 20150821
  Serious: No
  Sender: FDA-Public Use
  Company Number: US-ABBVIE-13P-163-1141157-00

PATIENT
  Age: 49 Year
  Sex: Male
  Weight: 104.42 kg

DRUGS (3)
  1. ANDROGEL [Suspect]
     Active Substance: TESTOSTERONE
     Indication: BLOOD TESTOSTERONE DECREASED
     Dosage: 20.25 MILLIGRAMS DAILY
     Route: 061
     Dates: start: 201307, end: 201401
  2. ANDROGEL [Suspect]
     Active Substance: TESTOSTERONE
     Dosage: 2 PUMPS DAILY
     Route: 061
     Dates: start: 201401, end: 201407
  3. CELEBREX [Concomitant]
     Active Substance: CELECOXIB
     Indication: TENDONITIS

REACTIONS (5)
  - Incorrect dose administered [Unknown]
  - Acne [Not Recovered/Not Resolved]
  - Drug ineffective [Not Recovered/Not Resolved]
  - Blood testosterone decreased [Not Recovered/Not Resolved]
  - Acne [Not Recovered/Not Resolved]

NARRATIVE: CASE EVENT DATE: 201307
